FAERS Safety Report 23004124 (Version 3)
Quarter: 2024Q3

REPORT INFORMATION
  Report Type: Spontaneous
  Country: CA (occurrence: CA)
  Receive Date: 20230928
  Receipt Date: 20240709
  Transmission Date: 20241017
  Serious: Yes (Life-Threatening, Hospitalization, Other)
  Sender: SANDOZ
  Company Number: CA-002147023-NVSC2022CA225823

PATIENT
  Age: 56 Year
  Sex: Male

DRUGS (593)
  1. AMLODIPINE [Suspect]
     Active Substance: AMLODIPINE BESYLATE
     Indication: Product used for unknown indication
     Dosage: 1.5 DOSAGE FORM, QD
     Route: 065
  2. AMLODIPINE [Suspect]
     Active Substance: AMLODIPINE BESYLATE
     Dosage: UNK, QD
     Route: 065
  3. AMLODIPINE [Suspect]
     Active Substance: AMLODIPINE BESYLATE
     Dosage: UNK
     Route: 065
  4. AMLODIPINE BESYLATE [Suspect]
     Active Substance: AMLODIPINE BESYLATE
     Dosage: 1 DOSAGE FORM, QD
     Route: 065
  5. AMLODIPINE BESYLATE [Suspect]
     Active Substance: AMLODIPINE BESYLATE
     Dosage: 1 DF, Q8H
     Route: 065
  6. AMLODIPINE BESYLATE [Suspect]
     Active Substance: AMLODIPINE BESYLATE
     Dosage: 1.5 DOSAGE FORM, QD
     Route: 065
  7. AMLODIPINE BESYLATE [Suspect]
     Active Substance: AMLODIPINE BESYLATE
     Dosage: 1.5 DOSAGE FORM
     Route: 065
  8. AMLODIPINE BESYLATE [Suspect]
     Active Substance: AMLODIPINE BESYLATE
     Dosage: 1.0 DOSAGE FORMS,QD
     Route: 065
  9. AMLODIPINE BESYLATE [Suspect]
     Active Substance: AMLODIPINE BESYLATE
     Indication: Prinzmetal angina
     Dosage: 1.5 DOSAGE FORMS ,QD
     Route: 065
  10. AMLODIPINE BESYLATE [Suspect]
     Active Substance: AMLODIPINE BESYLATE
     Dosage: 1.5 DOSAGE FORMS,QD
     Route: 065
  11. AMLODIPINE BESYLATE [Suspect]
     Active Substance: AMLODIPINE BESYLATE
     Indication: Migraine
     Dosage: UNK, QD
     Route: 065
  12. AMLODIPINE BESYLATE [Suspect]
     Active Substance: AMLODIPINE BESYLATE
     Dosage: UNK, QD
     Route: 065
  13. AMLODIPINE BESYLATE [Suspect]
     Active Substance: AMLODIPINE BESYLATE
     Dosage: UNK, QD
     Route: 065
  14. AMLODIPINE BESYLATE [Suspect]
     Active Substance: AMLODIPINE BESYLATE
     Dosage: 1.0 DOSAGE FORM
     Route: 065
  15. AMLODIPINE BESYLATE [Suspect]
     Active Substance: AMLODIPINE BESYLATE
     Dosage: 2.0 DOSAGE FORMS
     Route: 065
  16. AMLODIPINE BESYLATE [Suspect]
     Active Substance: AMLODIPINE BESYLATE
     Dosage: UNK
     Route: 065
  17. ACETAMINOPHEN [Suspect]
     Active Substance: ACETAMINOPHEN
     Indication: Prinzmetal angina
     Dosage: 160 MG, QD
     Route: 065
  18. ACETAMINOPHEN [Suspect]
     Active Substance: ACETAMINOPHEN
     Indication: Migraine
     Dosage: 160 MG
     Route: 065
  19. ACETAMINOPHEN [Suspect]
     Active Substance: ACETAMINOPHEN
     Dosage: 160 MG
     Route: 065
  20. ACETAMINOPHEN AND CODEINE [Suspect]
     Active Substance: ACETAMINOPHEN\CODEINE PHOSPHATE
     Indication: Migraine
     Dosage: 160 MG
     Route: 065
  21. ACETAMINOPHEN AND CODEINE [Suspect]
     Active Substance: ACETAMINOPHEN\CODEINE PHOSPHATE
     Indication: Prinzmetal angina
     Dosage: UNK, (ELIXIR) QD (STRENGTH: 160 MG - 8MG/5ML
     Route: 048
  22. ACETAMINOPHEN AND CODEINE [Suspect]
     Active Substance: ACETAMINOPHEN\CODEINE PHOSPHATE
     Dosage: UNK, QD
     Route: 065
  23. ACETAMINOPHEN AND CODEINE [Suspect]
     Active Substance: ACETAMINOPHEN\CODEINE PHOSPHATE
     Dosage: UNK, Q6H
     Route: 065
  24. ACETAMINOPHEN AND CODEINE [Suspect]
     Active Substance: ACETAMINOPHEN\CODEINE PHOSPHATE
     Dosage: UNK, Q6H
     Route: 065
  25. ACETAMINOPHEN AND CODEINE [Suspect]
     Active Substance: ACETAMINOPHEN\CODEINE PHOSPHATE
     Dosage: UNK, QID
     Route: 065
  26. ACETAMINOPHEN AND CODEINE [Suspect]
     Active Substance: ACETAMINOPHEN\CODEINE PHOSPHATE
     Dosage: UNK
     Route: 048
  27. ACETAMINOPHEN AND CODEINE [Suspect]
     Active Substance: ACETAMINOPHEN\CODEINE PHOSPHATE
     Dosage: UNK
     Route: 048
  28. ACETAMINOPHEN AND CODEINE [Suspect]
     Active Substance: ACETAMINOPHEN\CODEINE PHOSPHATE
     Dosage: UNK
     Route: 065
  29. ACETAMINOPHEN AND CODEINE [Suspect]
     Active Substance: ACETAMINOPHEN\CODEINE PHOSPHATE
     Dosage: UNK
     Route: 065
  30. ASPIRIN [Suspect]
     Active Substance: ASPIRIN
     Dosage: 1 DF, QD
     Route: 065
  31. ASPIRIN [Suspect]
     Active Substance: ASPIRIN
     Dosage: 1 DF, QD
     Route: 065
  32. ASPIRIN [Suspect]
     Active Substance: ASPIRIN
     Dosage: 1 DOSAGE FORM, QD
     Route: 065
  33. ASPIRIN [Suspect]
     Active Substance: ASPIRIN
     Indication: Migraine
     Dosage: 1 DOSAGE FORM, QD (COATED TABLET)
     Route: 065
  34. ASPIRIN [Suspect]
     Active Substance: ASPIRIN
     Dosage: 1.5 DOSAGE FORM, QD
     Route: 065
  35. ASPIRIN [Suspect]
     Active Substance: ASPIRIN
     Dosage: 80 MG
     Route: 065
  36. ASPIRIN [Suspect]
     Active Substance: ASPIRIN
     Indication: Prinzmetal angina
     Dosage: 81 MG, QD
     Route: 048
  37. ASPIRIN [Suspect]
     Active Substance: ASPIRIN
     Dosage: 81 MG, QD
     Route: 048
  38. ASPIRIN [Suspect]
     Active Substance: ASPIRIN
     Dosage: 81 MG, QD (COATED TABLET)
     Route: 065
  39. ASPIRIN [Suspect]
     Active Substance: ASPIRIN
     Dosage: 81 MG
     Route: 048
  40. ASPIRIN [Suspect]
     Active Substance: ASPIRIN
     Dosage: 81 MG
     Route: 048
  41. ASPIRIN [Suspect]
     Active Substance: ASPIRIN
     Dosage: 81 MG
     Route: 065
  42. ASPIRIN [Suspect]
     Active Substance: ASPIRIN
     Dosage: 81 MG (COATED TABLET)
     Route: 065
  43. ASPIRIN [Suspect]
     Active Substance: ASPIRIN
     Dosage: UNK, QD
     Route: 048
  44. ASPIRIN [Suspect]
     Active Substance: ASPIRIN
     Dosage: UNK, QD
     Route: 065
  45. ASPIRIN [Suspect]
     Active Substance: ASPIRIN
     Dosage: UNK, QD
     Route: 065
  46. ASPIRIN [Suspect]
     Active Substance: ASPIRIN
     Dosage: UNK, QD
     Route: 065
  47. ASPIRIN [Suspect]
     Active Substance: ASPIRIN
     Dosage: UNK, QD
     Route: 065
  48. ASPIRIN [Suspect]
     Active Substance: ASPIRIN
     Dosage: UNK, QD
     Route: 065
  49. ASPIRIN [Suspect]
     Active Substance: ASPIRIN
     Dosage: UNK, QD
     Route: 065
  50. ASPIRIN [Suspect]
     Active Substance: ASPIRIN
     Dosage: UNK, QD
     Route: 065
  51. ASPIRIN [Suspect]
     Active Substance: ASPIRIN
     Dosage: UNK, QD (COATED TABLET)
     Route: 065
  52. ASPIRIN [Suspect]
     Active Substance: ASPIRIN
     Dosage: UNK, QD
     Route: 048
  53. ASPIRIN [Suspect]
     Active Substance: ASPIRIN
     Dosage: UNK, QD (COATED TABLET)
     Route: 065
  54. ASPIRIN [Suspect]
     Active Substance: ASPIRIN
     Dosage: UNK
     Route: 065
  55. ALPRAZOLAM [Suspect]
     Active Substance: ALPRAZOLAM
     Indication: Migraine
     Dosage: UNK
     Route: 065
  56. ALPRAZOLAM [Suspect]
     Active Substance: ALPRAZOLAM
     Indication: Prinzmetal angina
     Dosage: UNK
     Route: 065
  57. ALPRAZOLAM [Suspect]
     Active Substance: ALPRAZOLAM
     Dosage: UNK
     Route: 065
  58. TRAZODONE HYDROCHLORIDE [Suspect]
     Active Substance: TRAZODONE HYDROCHLORIDE
     Dosage: 1 DF, QD
     Route: 048
  59. TRAZODONE HYDROCHLORIDE [Suspect]
     Active Substance: TRAZODONE HYDROCHLORIDE
     Indication: Product used for unknown indication
     Dosage: 1 DF, QD
     Route: 065
  60. TRAZODONE HYDROCHLORIDE [Suspect]
     Active Substance: TRAZODONE HYDROCHLORIDE
     Dosage: 1 DF
     Route: 065
  61. ALPRAZOLAM [Suspect]
     Active Substance: ALPRAZOLAM
     Indication: Product used for unknown indication
     Dosage: UNK
     Route: 065
  62. ASPIRIN [Suspect]
     Active Substance: ASPIRIN
     Dosage: 1 DOSAGE FORM, QD
     Route: 065
  63. ASPIRIN [Suspect]
     Active Substance: ASPIRIN
     Dosage: 81 MG
     Route: 065
  64. ASPIRIN [Suspect]
     Active Substance: ASPIRIN
     Dosage: 81 DOSAGE FORM, QD
     Route: 065
  65. ASPIRIN [Suspect]
     Active Substance: ASPIRIN
     Indication: Product used for unknown indication
     Dosage: UNK, QD
     Route: 048
  66. BISOPROLOL [Suspect]
     Active Substance: BISOPROLOL\BISOPROLOL FUMARATE
     Dosage: 1 DF, QD
     Route: 065
  67. BISOPROLOL [Suspect]
     Active Substance: BISOPROLOL\BISOPROLOL FUMARATE
     Indication: Prinzmetal angina
     Dosage: 1 DOSAGE FORM, QD
     Route: 048
  68. BISOPROLOL [Suspect]
     Active Substance: BISOPROLOL\BISOPROLOL FUMARATE
     Dosage: 1 DOSAGE FORM, QD
     Route: 048
  69. BISOPROLOL [Suspect]
     Active Substance: BISOPROLOL\BISOPROLOL FUMARATE
     Dosage: 1 DOSAGE FORM, QD
     Route: 048
  70. BISOPROLOL [Suspect]
     Active Substance: BISOPROLOL\BISOPROLOL FUMARATE
     Dosage: 1.0 DOSAGE FORM
     Route: 065
  71. BISOPROLOL [Suspect]
     Active Substance: BISOPROLOL\BISOPROLOL FUMARATE
     Dosage: 1.0 DOSAGE FORMS QD
     Route: 048
  72. BISOPROLOL [Suspect]
     Active Substance: BISOPROLOL\BISOPROLOL FUMARATE
     Dosage: 1.0 DOSAGE FORMS, QD
     Route: 065
  73. BISOPROLOL [Suspect]
     Active Substance: BISOPROLOL\BISOPROLOL FUMARATE
     Dosage: 1.0 DOSAGE FORMS, QD
     Route: 065
  74. BISOPROLOL [Suspect]
     Active Substance: BISOPROLOL\BISOPROLOL FUMARATE
     Dosage: 1.0 DOSAGE FORMS,QD
     Route: 065
  75. BISOPROLOL [Suspect]
     Active Substance: BISOPROLOL\BISOPROLOL FUMARATE
     Indication: Migraine
     Dosage: UNK, QD
     Route: 065
  76. BISOPROLOL [Suspect]
     Active Substance: BISOPROLOL\BISOPROLOL FUMARATE
     Dosage: 1.0 DOSAGE FORMS
     Route: 065
  77. BISOPROLOL [Suspect]
     Active Substance: BISOPROLOL\BISOPROLOL FUMARATE
     Dosage: UNK
     Route: 065
  78. BISOPROLOL [Suspect]
     Active Substance: BISOPROLOL\BISOPROLOL FUMARATE
     Dosage: UNK
     Route: 065
  79. BISOPROLOL [Suspect]
     Active Substance: BISOPROLOL\BISOPROLOL FUMARATE
     Dosage: UNK
     Route: 065
  80. BISOPROLOL [Suspect]
     Active Substance: BISOPROLOL\BISOPROLOL FUMARATE
     Dosage: UNK
     Route: 065
  81. BISOPROLOL FUMARATE [Suspect]
     Active Substance: BISOPROLOL FUMARATE
     Indication: Product used for unknown indication
     Dosage: 1 DOSAGE FORM, QD
     Route: 065
  82. BISOPROLOL FUMARATE [Suspect]
     Active Substance: BISOPROLOL FUMARATE
     Dosage: UNK
     Route: 065
  83. BISOPROLOL FUMARATE [Suspect]
     Active Substance: BISOPROLOL FUMARATE
     Dosage: UNK
     Route: 065
  84. BRILINTA [Suspect]
     Active Substance: TICAGRELOR
     Dosage: 1 DOSAGE FORM, QD
     Route: 065
  85. BRILINTA [Suspect]
     Active Substance: TICAGRELOR
     Dosage: 1 DOSAGE FORM, QD
     Route: 065
  86. BRILINTA [Suspect]
     Active Substance: TICAGRELOR
     Dosage: 1 DF, Q12H
     Route: 065
  87. BRILINTA [Suspect]
     Active Substance: TICAGRELOR
     Dosage: 1 DF, Q12H
     Route: 065
  88. BRILINTA [Suspect]
     Active Substance: TICAGRELOR
     Dosage: 1 DOSAGE FORM, BID
     Route: 048
  89. BRILINTA [Suspect]
     Active Substance: TICAGRELOR
     Indication: Prinzmetal angina
     Dosage: 1 DOSAGE FORM, BID
     Route: 065
  90. BRILINTA [Suspect]
     Active Substance: TICAGRELOR
     Dosage: 1 DF
     Route: 065
  91. BRILINTA [Suspect]
     Active Substance: TICAGRELOR
     Indication: Migraine
     Dosage: 1 DOSAGE FORM
     Route: 048
  92. BRILINTA [Suspect]
     Active Substance: TICAGRELOR
     Dosage: 1 DOSAGE FORM
     Route: 048
  93. BRILINTA [Suspect]
     Active Substance: TICAGRELOR
     Dosage: 2 DOSAGE FORM, QD
     Route: 048
  94. BRILINTA [Suspect]
     Active Substance: TICAGRELOR
     Dosage: 2 DOSAGE FORM, QD
     Route: 065
  95. BRILINTA [Suspect]
     Active Substance: TICAGRELOR
     Dosage: 2 DF, Q12H
     Route: 065
  96. BRILINTA [Suspect]
     Active Substance: TICAGRELOR
     Dosage: UNK
     Route: 065
  97. BRILINTA [Suspect]
     Active Substance: TICAGRELOR
     Dosage: UNK, BID
     Route: 048
  98. BRILINTA [Suspect]
     Active Substance: TICAGRELOR
     Dosage: UNK, BID
     Route: 048
  99. BRILINTA [Suspect]
     Active Substance: TICAGRELOR
     Dosage: UNK, BID
     Route: 048
  100. BRILINTA [Suspect]
     Active Substance: TICAGRELOR
     Dosage: UNK, BID
     Route: 065
  101. BRILINTA [Suspect]
     Active Substance: TICAGRELOR
     Dosage: UNK
     Route: 048
  102. BRILINTA [Suspect]
     Active Substance: TICAGRELOR
     Dosage: UNK
     Route: 065
  103. BRILINTA [Suspect]
     Active Substance: TICAGRELOR
     Dosage: UNK (1 EVERY 5 DAYS)
     Route: 048
  104. CODEINE PHOSPHATE [Suspect]
     Active Substance: CODEINE PHOSPHATE
     Indication: Product used for unknown indication
     Dosage: UNK
     Route: 065
  105. CICLOPIROX [Suspect]
     Active Substance: CICLOPIROX
     Dosage: 1 DF, QD
     Route: 048
  106. CICLOPIROX [Suspect]
     Active Substance: CICLOPIROX
     Dosage: 1 DF, QD
     Route: 065
  107. CICLOPIROX [Suspect]
     Active Substance: CICLOPIROX
     Dosage: 1 DF
     Route: 048
  108. CICLOPIROX [Suspect]
     Active Substance: CICLOPIROX
     Dosage: 3 DF, QD
     Route: 048
  109. CICLOPIROX [Suspect]
     Active Substance: CICLOPIROX
     Indication: Migraine
     Dosage: UNK, QD
     Route: 048
  110. CICLOPIROX [Suspect]
     Active Substance: CICLOPIROX
     Indication: Prinzmetal angina
     Dosage: UNK, QD
     Route: 065
  111. CICLOPIROX [Suspect]
     Active Substance: CICLOPIROX
     Dosage: UNK, QD (VAGINAL CAPSULE)
     Route: 065
  112. CICLOPIROX [Suspect]
     Active Substance: CICLOPIROX
     Dosage: UNK
     Route: 065
  113. CICLOPIROX [Suspect]
     Active Substance: CICLOPIROX
     Dosage: UNK (TABLET)
     Route: 065
  114. CICLOPIROX OLAMINE [Suspect]
     Active Substance: CICLOPIROX OLAMINE
     Indication: Migraine
     Dosage: 1 DOSAGE FORM, QD
     Route: 065
  115. CICLOPIROX OLAMINE [Suspect]
     Active Substance: CICLOPIROX OLAMINE
     Dosage: 1 DOSAGE FORM
     Route: 065
  116. CICLOPIROX OLAMINE [Suspect]
     Active Substance: CICLOPIROX OLAMINE
     Dosage: 3 DOSAGE FORM, QD
     Route: 048
  117. CICLOPIROX OLAMINE [Suspect]
     Active Substance: CICLOPIROX OLAMINE
     Dosage: UNK, QD
     Route: 065
  118. CICLOPIROX OLAMINE [Suspect]
     Active Substance: CICLOPIROX OLAMINE
     Dosage: UNK, QD
     Route: 065
  119. CICLOPIROX OLAMINE [Suspect]
     Active Substance: CICLOPIROX OLAMINE
     Dosage: UNK, QD
     Route: 065
  120. CICLOPIROX OLAMINE [Suspect]
     Active Substance: CICLOPIROX OLAMINE
     Indication: Prinzmetal angina
     Dosage: UNK
     Route: 065
  121. CICLOPIROX OLAMINE [Suspect]
     Active Substance: CICLOPIROX OLAMINE
     Dosage: UNK
     Route: 065
  122. CLONAZEPAM [Suspect]
     Active Substance: CLONAZEPAM
     Dosage: 1 DOSAGE FORM, QD
     Route: 065
  123. CLONAZEPAM [Suspect]
     Active Substance: CLONAZEPAM
     Dosage: 1 DF, Q8H
     Route: 048
  124. CLONAZEPAM [Suspect]
     Active Substance: CLONAZEPAM
     Dosage: 1 DOSAGE FORM, Q8H
     Route: 065
  125. CLONAZEPAM [Suspect]
     Active Substance: CLONAZEPAM
     Dosage: 1 DOSAGE FORM, TID
     Route: 048
  126. CLONAZEPAM [Suspect]
     Active Substance: CLONAZEPAM
     Dosage: 1 DOSAGE FORM, TID
     Route: 065
  127. CLONAZEPAM [Suspect]
     Active Substance: CLONAZEPAM
     Dosage: 1 DF
     Route: 048
  128. CLONAZEPAM [Suspect]
     Active Substance: CLONAZEPAM
     Dosage: 1 DF
     Route: 065
  129. CLONAZEPAM [Suspect]
     Active Substance: CLONAZEPAM
     Indication: Product used for unknown indication
     Dosage: 3 DOSAGE FORM, QD
     Route: 048
  130. CLONAZEPAM [Suspect]
     Active Substance: CLONAZEPAM
     Dosage: 3 DF, Q8H
     Route: 048
  131. CLONAZEPAM [Suspect]
     Active Substance: CLONAZEPAM
     Dosage: UNK, QD
     Route: 048
  132. CLONAZEPAM [Suspect]
     Active Substance: CLONAZEPAM
     Dosage: UNK, QD
     Route: 048
  133. CLONAZEPAM [Suspect]
     Active Substance: CLONAZEPAM
     Dosage: UNK, Q8H
     Route: 065
  134. CLONAZEPAM [Suspect]
     Active Substance: CLONAZEPAM
     Dosage: UNK
     Route: 065
  135. DILTIAZEM [Suspect]
     Active Substance: DILTIAZEM
     Dosage: 1 DF, QD
     Route: 048
  136. DILTIAZEM [Suspect]
     Active Substance: DILTIAZEM
     Dosage: 1 DOSAGE FORM, QD
     Route: 048
  137. DILTIAZEM [Suspect]
     Active Substance: DILTIAZEM
     Indication: Product used for unknown indication
     Dosage: 1 DOSAGE FORM, QD
     Route: 065
  138. DILTIAZEM [Suspect]
     Active Substance: DILTIAZEM
     Dosage: 1 DOSAGE FORM, QD
     Route: 065
  139. DILTIAZEM [Suspect]
     Active Substance: DILTIAZEM
     Dosage: 1 DF (CAPSULE)
     Route: 065
  140. DILTIAZEM [Suspect]
     Active Substance: DILTIAZEM
     Dosage: UNK, QD
     Route: 048
  141. DILTIAZEM [Suspect]
     Active Substance: DILTIAZEM
     Dosage: UNK, QD
     Route: 048
  142. DILTIAZEM HYDROCHLORIDE [Suspect]
     Active Substance: DILTIAZEM HYDROCHLORIDE
     Dosage: 1 DF, QD (CAPSULE)
     Route: 048
  143. DILTIAZEM HYDROCHLORIDE [Suspect]
     Active Substance: DILTIAZEM HYDROCHLORIDE
     Dosage: 1 DF, QD (CAPSULE)
     Route: 048
  144. DILTIAZEM HYDROCHLORIDE [Suspect]
     Active Substance: DILTIAZEM HYDROCHLORIDE
     Dosage: 1 DF, QD (CAPSULE)
     Route: 065
  145. DILTIAZEM HYDROCHLORIDE [Suspect]
     Active Substance: DILTIAZEM HYDROCHLORIDE
     Indication: Product used for unknown indication
     Dosage: 1 DOSAGE FORM, QD
     Route: 048
  146. DILTIAZEM HYDROCHLORIDE [Suspect]
     Active Substance: DILTIAZEM HYDROCHLORIDE
     Dosage: 1 DF
     Route: 048
  147. DILTIAZEM HYDROCHLORIDE [Suspect]
     Active Substance: DILTIAZEM HYDROCHLORIDE
     Dosage: 1 DF
     Route: 065
  148. DILTIAZEM HYDROCHLORIDE [Suspect]
     Active Substance: DILTIAZEM HYDROCHLORIDE
     Dosage: UNK, QD
     Route: 065
  149. DILTIAZEM HYDROCHLORIDE [Suspect]
     Active Substance: DILTIAZEM HYDROCHLORIDE
     Dosage: UNK
     Route: 065
  150. DILTIAZEM HYDROCHLORIDE [Suspect]
     Active Substance: DILTIAZEM HYDROCHLORIDE
     Dosage: UNK (CAPSULE HARD)
     Route: 048
  151. DELATESTRYL [Suspect]
     Active Substance: TESTOSTERONE ENANTHATE
     Dosage: 0.5 ML, QW
     Route: 065
  152. DELATESTRYL [Suspect]
     Active Substance: TESTOSTERONE ENANTHATE
     Dosage: 0.5 ML, QW (SOLUTION FOR INJECTION/INFUSION)
     Route: 030
  153. DELATESTRYL [Suspect]
     Active Substance: TESTOSTERONE ENANTHATE
     Dosage: 0.5 ML, QD
     Route: 030
  154. DELATESTRYL [Suspect]
     Active Substance: TESTOSTERONE ENANTHATE
     Dosage: 0.5 ML, QD
     Route: 030
  155. DELATESTRYL [Suspect]
     Active Substance: TESTOSTERONE ENANTHATE
     Dosage: 0.5 ML, QD
     Route: 030
  156. DELATESTRYL [Suspect]
     Active Substance: TESTOSTERONE ENANTHATE
     Dosage: 0.5 ML, QD
     Route: 065
  157. DELATESTRYL [Suspect]
     Active Substance: TESTOSTERONE ENANTHATE
     Dosage: 0.5 ML, QD
     Route: 065
  158. DELATESTRYL [Suspect]
     Active Substance: TESTOSTERONE ENANTHATE
     Dosage: 0.5 ML, QD
     Route: 065
  159. DELATESTRYL [Suspect]
     Active Substance: TESTOSTERONE ENANTHATE
     Dosage: 0.5 ML, Q2W
     Route: 065
  160. DELATESTRYL [Suspect]
     Active Substance: TESTOSTERONE ENANTHATE
     Indication: Prinzmetal angina
     Dosage: 0.5 ML, Q2W (INTRAMUSCULAR)
     Route: 030
  161. DELATESTRYL [Suspect]
     Active Substance: TESTOSTERONE ENANTHATE
     Dosage: 0.5 ML
     Route: 030
  162. DELATESTRYL [Suspect]
     Active Substance: TESTOSTERONE ENANTHATE
     Dosage: 1 DF, Q12H
     Route: 030
  163. DELATESTRYL [Suspect]
     Active Substance: TESTOSTERONE ENANTHATE
     Dosage: 1 DF, Q12H
     Route: 030
  164. DELATESTRYL [Suspect]
     Active Substance: TESTOSTERONE ENANTHATE
     Dosage: 1 DF, Q2W
     Route: 030
  165. DELATESTRYL [Suspect]
     Active Substance: TESTOSTERONE ENANTHATE
     Indication: Migraine
     Dosage: 1 DOSAGE FORM, BID
     Route: 030
  166. DELATESTRYL [Suspect]
     Active Substance: TESTOSTERONE ENANTHATE
     Dosage: 1 DOSAGE FORM, BID
     Route: 030
  167. DELATESTRYL [Suspect]
     Active Substance: TESTOSTERONE ENANTHATE
     Dosage: 1 DF
     Route: 030
  168. DELATESTRYL [Suspect]
     Active Substance: TESTOSTERONE ENANTHATE
     Dosage: 1 DF (1 EVERY 2 DAYS)
     Route: 030
  169. DELATESTRYL [Suspect]
     Active Substance: TESTOSTERONE ENANTHATE
     Dosage: 1 DOSAGE FORM
     Route: 065
  170. DELATESTRYL [Suspect]
     Active Substance: TESTOSTERONE ENANTHATE
     Dosage: 5 ML, QD
     Route: 030
  171. DELATESTRYL [Suspect]
     Active Substance: TESTOSTERONE ENANTHATE
     Dosage: 5 ML, Q2W
     Route: 030
  172. DELATESTRYL [Suspect]
     Active Substance: TESTOSTERONE ENANTHATE
     Dosage: 5 ML
     Route: 065
  173. DELATESTRYL [Suspect]
     Active Substance: TESTOSTERONE ENANTHATE
     Dosage: 5 UNK, QW
     Route: 065
  174. DELATESTRYL [Suspect]
     Active Substance: TESTOSTERONE ENANTHATE
     Dosage: UNK, QD
     Route: 030
  175. DELATESTRYL [Suspect]
     Active Substance: TESTOSTERONE ENANTHATE
     Dosage: UNK, QD
     Route: 065
  176. DELATESTRYL [Suspect]
     Active Substance: TESTOSTERONE ENANTHATE
     Dosage: UNK, Q12H
     Route: 065
  177. DELATESTRYL [Suspect]
     Active Substance: TESTOSTERONE ENANTHATE
     Dosage: UNK
     Route: 030
  178. DELATESTRYL [Suspect]
     Active Substance: TESTOSTERONE ENANTHATE
     Dosage: UNK
     Route: 065
  179. DELATESTRYL [Suspect]
     Active Substance: TESTOSTERONE ENANTHATE
     Dosage: UNK (1 EVERY 5 DAYS)
     Route: 065
  180. DELATESTRYL [Suspect]
     Active Substance: TESTOSTERONE ENANTHATE
     Dosage: UNK (LIQUID)
     Route: 030
  181. DELATESTRYL [Suspect]
     Active Substance: TESTOSTERONE ENANTHATE
     Dosage: UNK (SOLUTION)
     Route: 030
  182. DEXILANT [Suspect]
     Active Substance: DEXLANSOPRAZOLE
     Indication: Prinzmetal angina
     Dosage: 0.5 ML, QD
     Route: 065
  183. DEXILANT [Suspect]
     Active Substance: DEXLANSOPRAZOLE
     Dosage: 0.5 ML, QD
     Route: 065
  184. DEXILANT [Suspect]
     Active Substance: DEXLANSOPRAZOLE
     Dosage: 1 DF, QD
     Route: 048
  185. DEXILANT [Suspect]
     Active Substance: DEXLANSOPRAZOLE
     Dosage: 1 DF, QD (CAPSULE, DELAYED RELEASE)
     Route: 065
  186. DEXILANT [Suspect]
     Active Substance: DEXLANSOPRAZOLE
     Dosage: 1 DOSAGE FORM, QD
     Route: 048
  187. DEXILANT [Suspect]
     Active Substance: DEXLANSOPRAZOLE
     Dosage: 1 DOSAGE FORM, QD
     Route: 048
  188. DEXILANT [Suspect]
     Active Substance: DEXLANSOPRAZOLE
     Dosage: 1 DOSAGE FORM, QD
     Route: 065
  189. DEXILANT [Suspect]
     Active Substance: DEXLANSOPRAZOLE
     Dosage: 1 DOSAGE FORM, QD
     Route: 065
  190. DEXILANT [Suspect]
     Active Substance: DEXLANSOPRAZOLE
     Indication: Migraine
     Dosage: UNK, QD
     Route: 048
  191. DEXILANT [Suspect]
     Active Substance: DEXLANSOPRAZOLE
     Dosage: UNK, QD
     Route: 048
  192. DEXLANSOPRAZOLE [Suspect]
     Active Substance: DEXLANSOPRAZOLE
     Indication: Product used for unknown indication
     Dosage: 1 DF, QD
     Route: 065
  193. ESCITALOPRAM [Suspect]
     Active Substance: ESCITALOPRAM OXALATE
     Indication: Prinzmetal angina
     Dosage: 1 DOSAGE FORM, QD
     Route: 065
  194. ESCITALOPRAM [Suspect]
     Active Substance: ESCITALOPRAM OXALATE
     Dosage: 1 DOSAGE FORM, QD
     Route: 065
  195. ESCITALOPRAM [Suspect]
     Active Substance: ESCITALOPRAM OXALATE
     Dosage: UNK, QD
     Route: 065
  196. ESCITALOPRAM [Suspect]
     Active Substance: ESCITALOPRAM OXALATE
     Dosage: UNK
     Route: 065
  197. ESCITALOPRAM [Suspect]
     Active Substance: ESCITALOPRAM OXALATE
     Dosage: UNK
     Route: 065
  198. ESCITALOPRAM OXALATE [Suspect]
     Active Substance: ESCITALOPRAM OXALATE
     Dosage: 0.5 ML, QD
     Route: 030
  199. ESCITALOPRAM OXALATE [Suspect]
     Active Substance: ESCITALOPRAM OXALATE
     Dosage: 0.5 ML, QD
     Route: 030
  200. ESCITALOPRAM OXALATE [Suspect]
     Active Substance: ESCITALOPRAM OXALATE
     Dosage: 1 DF, QD
     Route: 065
  201. ESCITALOPRAM OXALATE [Suspect]
     Active Substance: ESCITALOPRAM OXALATE
     Indication: Migraine
     Dosage: 1 DOSAGE FORM, QD
     Route: 065
  202. ESCITALOPRAM OXALATE [Suspect]
     Active Substance: ESCITALOPRAM OXALATE
     Dosage: 1 DOSAGE FORM, QD
     Route: 065
  203. ESCITALOPRAM OXALATE [Suspect]
     Active Substance: ESCITALOPRAM OXALATE
     Dosage: 1 DF
     Route: 065
  204. ESCITALOPRAM OXALATE [Suspect]
     Active Substance: ESCITALOPRAM OXALATE
     Dosage: 1 DOSAGE FORM
     Route: 065
  205. ESCITALOPRAM OXALATE [Suspect]
     Active Substance: ESCITALOPRAM OXALATE
     Indication: Prinzmetal angina
     Dosage: UNK, QD
     Route: 065
  206. ESCITALOPRAM OXALATE [Suspect]
     Active Substance: ESCITALOPRAM OXALATE
     Dosage: UNK
     Route: 065
  207. ESCITALOPRAM OXALATE [Suspect]
     Active Substance: ESCITALOPRAM OXALATE
     Dosage: UNK
     Route: 065
  208. HYDROCORTISONE [Suspect]
     Active Substance: HYDROCORTISONE\HYDROCORTISONE ACETATE
     Dosage: 1 DF, QD
     Route: 065
  209. HYDROCORTISONE [Suspect]
     Active Substance: HYDROCORTISONE\HYDROCORTISONE ACETATE
     Indication: Prinzmetal angina
     Dosage: 1 DOSAGE FORM, QD
     Route: 061
  210. HYDROCORTISONE [Suspect]
     Active Substance: HYDROCORTISONE\HYDROCORTISONE ACETATE
     Dosage: 1 DF
     Route: 061
  211. HYDROCORTISONE [Suspect]
     Active Substance: HYDROCORTISONE\HYDROCORTISONE ACETATE
     Dosage: 1 DF
     Route: 065
  212. HYDROCORTISONE [Suspect]
     Active Substance: HYDROCORTISONE\HYDROCORTISONE ACETATE
     Indication: Migraine
     Dosage: UNK, QD
     Route: 061
  213. HYDROCORTISONE [Suspect]
     Active Substance: HYDROCORTISONE\HYDROCORTISONE ACETATE
     Dosage: UNK
     Route: 065
  214. FLOMAX [Suspect]
     Active Substance: TAMSULOSIN HYDROCHLORIDE
     Indication: Prinzmetal angina
     Dosage: 1 DOSAGE FORM, QD
     Route: 048
  215. FLOMAX [Suspect]
     Active Substance: TAMSULOSIN HYDROCHLORIDE
     Indication: Migraine
     Dosage: UNK, QD
     Route: 065
  216. FLOMAX [Suspect]
     Active Substance: TAMSULOSIN HYDROCHLORIDE
     Dosage: UNK, Q6H
     Route: 065
  217. NITROGLYCERIN [Suspect]
     Active Substance: NITROGLYCERIN
     Dosage: 1 DF, QD
     Route: 065
  218. NITROGLYCERIN [Suspect]
     Active Substance: NITROGLYCERIN
     Dosage: 1 DOSAGE FORM, QD
     Route: 048
  219. NITROGLYCERIN [Suspect]
     Active Substance: NITROGLYCERIN
     Dosage: 1 DOSAGE FORM, QD
     Route: 048
  220. NITROGLYCERIN [Suspect]
     Active Substance: NITROGLYCERIN
     Dosage: 1 DOSAGE FORM, QD
     Route: 048
  221. NITROGLYCERIN [Suspect]
     Active Substance: NITROGLYCERIN
     Dosage: 1 DOSAGE FORM, QD
     Route: 065
  222. NITROGLYCERIN [Suspect]
     Active Substance: NITROGLYCERIN
     Dosage: 1 DF, Q6H
     Route: 048
  223. NITROGLYCERIN [Suspect]
     Active Substance: NITROGLYCERIN
     Dosage: 1 DF, Q6H
     Route: 048
  224. NITROGLYCERIN [Suspect]
     Active Substance: NITROGLYCERIN
     Dosage: 1 DF, Q6H
     Route: 048
  225. NITROGLYCERIN [Suspect]
     Active Substance: NITROGLYCERIN
     Dosage: 1 DF, Q8H
     Route: 065
  226. NITROGLYCERIN [Suspect]
     Active Substance: NITROGLYCERIN
     Dosage: 1 DOSAGE FORM, TID
     Route: 065
  227. NITROGLYCERIN [Suspect]
     Active Substance: NITROGLYCERIN
     Dosage: 1 DF
     Route: 048
  228. NITROGLYCERIN [Suspect]
     Active Substance: NITROGLYCERIN
     Indication: Migraine
     Dosage: UNK, QD
     Route: 048
  229. NITROGLYCERIN [Suspect]
     Active Substance: NITROGLYCERIN
     Dosage: UNK, QD
     Route: 048
  230. NITROGLYCERIN [Suspect]
     Active Substance: NITROGLYCERIN
     Dosage: UNK, QD
     Route: 048
  231. NITROGLYCERIN [Suspect]
     Active Substance: NITROGLYCERIN
     Dosage: UNK, QD
     Route: 048
  232. NITROGLYCERIN [Suspect]
     Active Substance: NITROGLYCERIN
     Dosage: UNK, QD
     Route: 065
  233. NITROGLYCERIN [Suspect]
     Active Substance: NITROGLYCERIN
     Dosage: UNK, QD
     Route: 065
  234. NITROGLYCERIN [Suspect]
     Active Substance: NITROGLYCERIN
     Dosage: UNK, Q6H
     Route: 048
  235. NITROGLYCERIN [Suspect]
     Active Substance: NITROGLYCERIN
     Dosage: UNK, Q6H
     Route: 065
  236. NITROGLYCERIN [Suspect]
     Active Substance: NITROGLYCERIN
     Dosage: UNK, Q8H
     Route: 065
  237. NITROGLYCERIN [Suspect]
     Active Substance: NITROGLYCERIN
     Dosage: UNK, Q8H
     Route: 065
  238. NITROGLYCERIN [Suspect]
     Active Substance: NITROGLYCERIN
     Dosage: UNK
     Route: 048
  239. NITROGLYCERIN [Suspect]
     Active Substance: NITROGLYCERIN
     Dosage: UNK
     Route: 048
  240. NITROGLYCERIN [Suspect]
     Active Substance: NITROGLYCERIN
     Dosage: UNK
     Route: 048
  241. NITROGLYCERIN [Suspect]
     Active Substance: NITROGLYCERIN
     Dosage: UNK
     Route: 048
  242. NITROGLYCERIN [Suspect]
     Active Substance: NITROGLYCERIN
     Indication: Prinzmetal angina
     Dosage: UNK
     Route: 065
  243. NITROGLYCERIN [Suspect]
     Active Substance: NITROGLYCERIN
     Dosage: UNK
     Route: 065
  244. NITROGLYCERIN [Suspect]
     Active Substance: NITROGLYCERIN
     Dosage: UNK (EVERY 4 DAYS)
     Route: 048
  245. HYDROCORTISONE [Suspect]
     Active Substance: HYDROCORTISONE\HYDROCORTISONE ACETATE
     Indication: Prinzmetal angina
     Dosage: 1 DOSAGE FORM, QD
     Route: 061
  246. HYDROCORTISONE [Suspect]
     Active Substance: HYDROCORTISONE\HYDROCORTISONE ACETATE
     Dosage: 1 DOSAGE FORM, QD
     Route: 061
  247. HYDROCORTISONE [Suspect]
     Active Substance: HYDROCORTISONE\HYDROCORTISONE ACETATE
     Dosage: 1 DOSAGE FORM
     Route: 061
  248. HYDROCORTISONE [Suspect]
     Active Substance: HYDROCORTISONE\HYDROCORTISONE ACETATE
     Dosage: 1 DOSAGE FORM
     Route: 065
  249. HYDROCORTISONE [Suspect]
     Active Substance: HYDROCORTISONE\HYDROCORTISONE ACETATE
     Dosage: UNK, QD
     Route: 061
  250. HYDROCORTISONE [Suspect]
     Active Substance: HYDROCORTISONE\HYDROCORTISONE ACETATE
     Dosage: UNK
     Route: 061
  251. HYDROCORTISONE [Suspect]
     Active Substance: HYDROCORTISONE\HYDROCORTISONE ACETATE
     Dosage: UNK
     Route: 065
  252. HYDROMORPHONE HYDROCHLORIDE [Suspect]
     Active Substance: HYDROMORPHONE HYDROCHLORIDE
     Indication: Product used for unknown indication
     Dosage: UNK
     Route: 065
  253. HYDROCORTISONE PROBUTATE [Suspect]
     Active Substance: HYDROCORTISONE PROBUTATE
     Indication: Product used for unknown indication
     Route: 061
  254. HYDROCORTISONE BUTYRATE [Suspect]
     Active Substance: HYDROCORTISONE BUTYRATE
     Dosage: 1 DF, QD
     Route: 061
  255. HYDROCORTISONE BUTYRATE [Suspect]
     Active Substance: HYDROCORTISONE BUTYRATE
     Dosage: 1 DF, QD
     Route: 065
  256. HYDROCORTISONE BUTYRATE [Suspect]
     Active Substance: HYDROCORTISONE BUTYRATE
     Dosage: 1 DF, QD
     Route: 065
  257. HYDROCORTISONE BUTYRATE [Suspect]
     Active Substance: HYDROCORTISONE BUTYRATE
     Dosage: 1 DOSAGE FORM, QD
     Route: 061
  258. HYDROCORTISONE BUTYRATE [Suspect]
     Active Substance: HYDROCORTISONE BUTYRATE
     Dosage: 1 DF
     Route: 061
  259. HYDROCORTISONE BUTYRATE [Suspect]
     Active Substance: HYDROCORTISONE BUTYRATE
     Dosage: 1 DF
     Route: 065
  260. HYDROCORTISONE BUTYRATE [Suspect]
     Active Substance: HYDROCORTISONE BUTYRATE
     Dosage: 1 DF
     Route: 065
  261. HYDROCORTISONE BUTYRATE [Suspect]
     Active Substance: HYDROCORTISONE BUTYRATE
     Indication: Prinzmetal angina
     Dosage: 1 DOSAGE FORM
     Route: 061
  262. HYDROCORTISONE BUTYRATE [Suspect]
     Active Substance: HYDROCORTISONE BUTYRATE
     Indication: Migraine
     Dosage: UNK, QD
     Route: 065
  263. HYDROCORTISONE BUTYRATE [Suspect]
     Active Substance: HYDROCORTISONE BUTYRATE
     Dosage: UNK, QD
     Route: 065
  264. HYDROCORTISONE BUTYRATE [Suspect]
     Active Substance: HYDROCORTISONE BUTYRATE
     Dosage: UNK, QD
     Route: 061
  265. HYDROCORTISONE BUTYRATE [Suspect]
     Active Substance: HYDROCORTISONE BUTYRATE
     Dosage: UNK
     Route: 061
  266. HYDROCORTISONE BUTYRATE [Suspect]
     Active Substance: HYDROCORTISONE BUTYRATE
     Dosage: UNK
     Route: 061
  267. HYDROCORTISONE BUTYRATE [Suspect]
     Active Substance: HYDROCORTISONE BUTYRATE
     Dosage: UNK
     Route: 065
  268. LEVOTHYROXINE SODIUM [Suspect]
     Active Substance: LEVOTHYROXINE SODIUM
     Dosage: 0.5 ML
     Route: 030
  269. LEVOTHYROXINE SODIUM [Suspect]
     Active Substance: LEVOTHYROXINE SODIUM
     Dosage: 1 DF, QD
     Route: 065
  270. LEVOTHYROXINE SODIUM [Suspect]
     Active Substance: LEVOTHYROXINE SODIUM
     Dosage: 1 DF, QD (TABLET)
     Route: 065
  271. LEVOTHYROXINE SODIUM [Suspect]
     Active Substance: LEVOTHYROXINE SODIUM
     Indication: Prinzmetal angina
     Dosage: 1 DOSAGE FORM, QD
     Route: 065
  272. LEVOTHYROXINE SODIUM [Suspect]
     Active Substance: LEVOTHYROXINE SODIUM
     Dosage: 1 DOSAGE FORM, QD
     Route: 065
  273. LEVOTHYROXINE SODIUM [Suspect]
     Active Substance: LEVOTHYROXINE SODIUM
     Dosage: 1 DOSAGE FORM, QD
     Route: 065
  274. LEVOTHYROXINE SODIUM [Suspect]
     Active Substance: LEVOTHYROXINE SODIUM
     Indication: Migraine
     Dosage: 1 DOSAGE FORM
     Route: 065
  275. LEVOTHYROXINE SODIUM [Suspect]
     Active Substance: LEVOTHYROXINE SODIUM
     Dosage: 1 DOSAGE FORM
     Route: 065
  276. LEVOTHYROXINE SODIUM [Suspect]
     Active Substance: LEVOTHYROXINE SODIUM
     Dosage: UNK, QD
     Route: 065
  277. LEVOTHYROXINE SODIUM [Suspect]
     Active Substance: LEVOTHYROXINE SODIUM
     Dosage: UNK
     Route: 065
  278. MOMETASONE FUROATE [Suspect]
     Active Substance: MOMETASONE FUROATE
     Dosage: 1 DF, QD
     Route: 055
  279. MOMETASONE FUROATE [Suspect]
     Active Substance: MOMETASONE FUROATE
     Dosage: 1 DF, QD
     Route: 055
  280. MOMETASONE FUROATE [Suspect]
     Active Substance: MOMETASONE FUROATE
     Dosage: 1 DF, QD
     Route: 055
  281. MOMETASONE FUROATE [Suspect]
     Active Substance: MOMETASONE FUROATE
     Dosage: 1 DF, QD
     Route: 065
  282. MOMETASONE FUROATE [Suspect]
     Active Substance: MOMETASONE FUROATE
     Dosage: 1 DOSAGE FORM, QD
     Route: 045
  283. MOMETASONE FUROATE [Suspect]
     Active Substance: MOMETASONE FUROATE
     Dosage: 1 DOSAGE FORM, QD
     Route: 045
  284. MOMETASONE FUROATE [Suspect]
     Active Substance: MOMETASONE FUROATE
     Indication: Migraine
     Dosage: 1 DOSAGE FORM, QD
     Route: 055
  285. MOMETASONE FUROATE [Suspect]
     Active Substance: MOMETASONE FUROATE
     Dosage: 1 DOSAGE FORM, QD
     Route: 055
  286. MOMETASONE FUROATE [Suspect]
     Active Substance: MOMETASONE FUROATE
     Indication: Prinzmetal angina
     Dosage: UNK, QD
     Route: 055
  287. MOMETASONE FUROATE [Suspect]
     Active Substance: MOMETASONE FUROATE
     Dosage: UNK
     Route: 050
  288. MOMETASONE FUROATE [Suspect]
     Active Substance: MOMETASONE FUROATE
     Dosage: UNK
     Route: 050
  289. MOMETASONE FUROATE [Suspect]
     Active Substance: MOMETASONE FUROATE
     Dosage: UNK
     Route: 050
  290. MOMETASONE FUROATE [Suspect]
     Active Substance: MOMETASONE FUROATE
     Dosage: UNK
     Route: 050
  291. MOMETASONE FUROATE [Suspect]
     Active Substance: MOMETASONE FUROATE
     Dosage: UNK (NASAL SPRAY)
     Route: 050
  292. MOMETASONE FUROATE [Suspect]
     Active Substance: MOMETASONE FUROATE
     Dosage: UNK (INTRA-NASAL)
     Route: 045
  293. MOMETASONE FUROATE [Suspect]
     Active Substance: MOMETASONE FUROATE
     Dosage: UNK (INTRA-NASAL)
     Route: 045
  294. MOMETASONE FUROATE [Suspect]
     Active Substance: MOMETASONE FUROATE
     Dosage: UNK (INTRA-NASAL)
     Route: 045
  295. MOMETASONE FUROATE [Suspect]
     Active Substance: MOMETASONE FUROATE
     Dosage: UNK (INTRA-NASAL)
     Route: 045
  296. MOMETASONE FUROATE [Suspect]
     Active Substance: MOMETASONE FUROATE
     Dosage: UNK (INTRA-NASAL)
     Route: 045
  297. MOMETASONE FUROATE [Suspect]
     Active Substance: MOMETASONE FUROATE
     Dosage: UNK (INTRA-NASAL)
     Route: 045
  298. MOMETASONE FUROATE [Suspect]
     Active Substance: MOMETASONE FUROATE
     Dosage: UNK (INTRA-NASAL)
     Route: 045
  299. MOMETASONE FUROATE [Suspect]
     Active Substance: MOMETASONE FUROATE
     Dosage: UNK (INTRA-NASAL)
     Route: 045
  300. MOMETASONE FUROATE [Suspect]
     Active Substance: MOMETASONE FUROATE
     Dosage: UNK (INTRA-NASAL)
     Route: 045
  301. MOMETASONE FUROATE [Suspect]
     Active Substance: MOMETASONE FUROATE
     Dosage: UNK (INTRA-NASAL)
     Route: 045
  302. MOMETASONE FUROATE [Suspect]
     Active Substance: MOMETASONE FUROATE
     Dosage: UNK (INTRA-NASAL)
     Route: 045
  303. MOMETASONE FUROATE [Suspect]
     Active Substance: MOMETASONE FUROATE
     Dosage: UNK (INTRA-NASAL)
     Route: 045
  304. METOCLOPRAMIDE [Suspect]
     Active Substance: METOCLOPRAMIDE
     Indication: Product used for unknown indication
     Route: 065
  305. METOCLOPRAMIDE HYDROCHLORIDE [Suspect]
     Active Substance: METOCLOPRAMIDE HYDROCHLORIDE
     Dosage: 1 DOSAGE FORM, QD
     Route: 048
  306. METOCLOPRAMIDE HYDROCHLORIDE [Suspect]
     Active Substance: METOCLOPRAMIDE HYDROCHLORIDE
     Dosage: 1 DOSAGE FORM, QD
     Route: 065
  307. METOCLOPRAMIDE HYDROCHLORIDE [Suspect]
     Active Substance: METOCLOPRAMIDE HYDROCHLORIDE
     Dosage: 1 DF, Q8H
     Route: 065
  308. METOCLOPRAMIDE HYDROCHLORIDE [Suspect]
     Active Substance: METOCLOPRAMIDE HYDROCHLORIDE
     Dosage: 1 DOSAGE FORM, TID
     Route: 065
  309. METOCLOPRAMIDE HYDROCHLORIDE [Suspect]
     Active Substance: METOCLOPRAMIDE HYDROCHLORIDE
     Indication: Migraine
     Dosage: 1 DOSAGE FORM
     Route: 065
  310. METOCLOPRAMIDE HYDROCHLORIDE [Suspect]
     Active Substance: METOCLOPRAMIDE HYDROCHLORIDE
     Dosage: 3 DOSAGE FORM, QD
     Route: 048
  311. METOCLOPRAMIDE HYDROCHLORIDE [Suspect]
     Active Substance: METOCLOPRAMIDE HYDROCHLORIDE
     Dosage: 3 DOSAGE FORM, QD
     Route: 048
  312. METOCLOPRAMIDE HYDROCHLORIDE [Suspect]
     Active Substance: METOCLOPRAMIDE HYDROCHLORIDE
     Dosage: 3 DF, Q8H
     Route: 048
  313. METOCLOPRAMIDE HYDROCHLORIDE [Suspect]
     Active Substance: METOCLOPRAMIDE HYDROCHLORIDE
     Dosage: 3 DF, Q8H
     Route: 065
  314. METOCLOPRAMIDE HYDROCHLORIDE [Suspect]
     Active Substance: METOCLOPRAMIDE HYDROCHLORIDE
     Dosage: 3 DF
     Route: 065
  315. METOCLOPRAMIDE HYDROCHLORIDE [Suspect]
     Active Substance: METOCLOPRAMIDE HYDROCHLORIDE
     Dosage: UNK, QD
     Route: 048
  316. METOCLOPRAMIDE HYDROCHLORIDE [Suspect]
     Active Substance: METOCLOPRAMIDE HYDROCHLORIDE
     Dosage: UNK, QD
     Route: 048
  317. METOCLOPRAMIDE HYDROCHLORIDE [Suspect]
     Active Substance: METOCLOPRAMIDE HYDROCHLORIDE
     Dosage: UNK, Q8H
     Route: 065
  318. METOCLOPRAMIDE HYDROCHLORIDE [Suspect]
     Active Substance: METOCLOPRAMIDE HYDROCHLORIDE
     Indication: Prinzmetal angina
     Dosage: UNK, TID
     Route: 048
  319. METOCLOPRAMIDE HYDROCHLORIDE [Suspect]
     Active Substance: METOCLOPRAMIDE HYDROCHLORIDE
     Dosage: UNK, TID
     Route: 048
  320. METOCLOPRAMIDE HYDROCHLORIDE [Suspect]
     Active Substance: METOCLOPRAMIDE HYDROCHLORIDE
     Dosage: UNK
     Route: 048
  321. METOCLOPRAMIDE HYDROCHLORIDE [Suspect]
     Active Substance: METOCLOPRAMIDE HYDROCHLORIDE
     Dosage: UNK
     Route: 065
  322. METOCLOPRAMIDE [Suspect]
     Active Substance: METOCLOPRAMIDE
     Indication: Prinzmetal angina
     Dosage: 1 DOSAGE FORM, QD
     Route: 048
  323. METOCLOPRAMIDE [Suspect]
     Active Substance: METOCLOPRAMIDE
     Dosage: 1 DF, Q8H
     Route: 048
  324. METOCLOPRAMIDE [Suspect]
     Active Substance: METOCLOPRAMIDE
     Dosage: 1 DF, Q8H
     Route: 065
  325. METOCLOPRAMIDE [Suspect]
     Active Substance: METOCLOPRAMIDE
     Dosage: 1 DOSAGE FORM, TID
     Route: 048
  326. METOCLOPRAMIDE [Suspect]
     Active Substance: METOCLOPRAMIDE
     Dosage: 1 DOSAGE FORM, TID
     Route: 048
  327. METOCLOPRAMIDE [Suspect]
     Active Substance: METOCLOPRAMIDE
     Dosage: 1 DOSAGE FORM, TID
     Route: 048
  328. METOCLOPRAMIDE [Suspect]
     Active Substance: METOCLOPRAMIDE
     Dosage: 1 DF
     Route: 065
  329. METOCLOPRAMIDE [Suspect]
     Active Substance: METOCLOPRAMIDE
     Dosage: 3 DF, QD
     Route: 065
  330. METOCLOPRAMIDE [Suspect]
     Active Substance: METOCLOPRAMIDE
     Dosage: 3 DOSAGE FORM, QD
     Route: 065
  331. METOCLOPRAMIDE [Suspect]
     Active Substance: METOCLOPRAMIDE
     Indication: Migraine
     Dosage: UNK UNK, QD
     Route: 065
  332. METOCLOPRAMIDE [Suspect]
     Active Substance: METOCLOPRAMIDE
     Dosage: UNK, Q8H
     Route: 065
  333. METOCLOPRAMIDE [Suspect]
     Active Substance: METOCLOPRAMIDE
     Dosage: UNK, Q8H
     Route: 065
  334. METOCLOPRAMIDE [Suspect]
     Active Substance: METOCLOPRAMIDE
     Dosage: UNK
     Route: 065
  335. METOCLOPRAMIDE [Suspect]
     Active Substance: METOCLOPRAMIDE
     Dosage: UNK (1 EVERY 3 DAYS)
     Route: 065
  336. MORNIFLUMATE [Suspect]
     Active Substance: MORNIFLUMATE
     Dosage: 1 DF, QD
     Route: 065
  337. MORNIFLUMATE [Suspect]
     Active Substance: MORNIFLUMATE
     Dosage: 1 DF
     Route: 065
  338. MORNIFLUMATE [Suspect]
     Active Substance: MORNIFLUMATE
     Indication: Migraine
     Dosage: UNK, QD
     Route: 065
  339. MORNIFLUMATE [Suspect]
     Active Substance: MORNIFLUMATE
     Indication: Prinzmetal angina
     Dosage: UNK, QD
     Route: 065
  340. MORNIFLUMATE [Suspect]
     Active Substance: MORNIFLUMATE
     Dosage: UNK
     Route: 065
  341. NITROGLYCERIN [Suspect]
     Active Substance: NITROGLYCERIN
     Indication: Prinzmetal angina
     Dosage: UNK (SUBLINGUAL SPRAY)
     Route: 048
  342. NITROGLYCERIN [Suspect]
     Active Substance: NITROGLYCERIN
     Dosage: UNK (METERED DOSE)
     Route: 048
  343. NASONEX [Suspect]
     Active Substance: MOMETASONE FUROATE
     Dosage: 1 DF, QD
     Route: 065
  344. NASONEX [Suspect]
     Active Substance: MOMETASONE FUROATE
     Dosage: 1 DF, QD
     Route: 065
  345. NASONEX [Suspect]
     Active Substance: MOMETASONE FUROATE
     Dosage: 1 DF, QD (INHALATION)
     Route: 065
  346. NASONEX [Suspect]
     Active Substance: MOMETASONE FUROATE
     Dosage: 1 DF, QD (INTRA-NASAL)
     Route: 055
  347. NASONEX [Suspect]
     Active Substance: MOMETASONE FUROATE
     Dosage: 1 DOSAGE FORM, QD
     Route: 045
  348. NASONEX [Suspect]
     Active Substance: MOMETASONE FUROATE
     Dosage: UNK, QD (SPAY, METERED DOSE)
     Route: 045
  349. NASONEX [Suspect]
     Active Substance: MOMETASONE FUROATE
     Dosage: 1 DF
     Route: 065
  350. NASONEX [Suspect]
     Active Substance: MOMETASONE FUROATE
     Indication: Prinzmetal angina
     Dosage: UNK , QD
     Route: 055
  351. NASONEX [Suspect]
     Active Substance: MOMETASONE FUROATE
     Dosage: UNK , QD
     Route: 055
  352. NASONEX [Suspect]
     Active Substance: MOMETASONE FUROATE
     Indication: Migraine
     Dosage: UNK, QD
     Route: 045
  353. NASONEX [Suspect]
     Active Substance: MOMETASONE FUROATE
     Dosage: UNK, QD
     Route: 045
  354. NASONEX [Suspect]
     Active Substance: MOMETASONE FUROATE
     Dosage: UNK, QD
     Route: 065
  355. NASONEX [Suspect]
     Active Substance: MOMETASONE FUROATE
     Dosage: UNK
     Route: 045
  356. NASONEX [Suspect]
     Active Substance: MOMETASONE FUROATE
     Dosage: UNK
     Route: 050
  357. NASONEX [Suspect]
     Active Substance: MOMETASONE FUROATE
     Dosage: UNK
     Route: 065
  358. NASONEX [Suspect]
     Active Substance: MOMETASONE FUROATE
     Dosage: UNK, QD
     Route: 045
  359. NITRO-DUR [Suspect]
     Active Substance: NITROGLYCERIN
     Dosage: 1 DOSAGE FORM, QD
     Route: 048
  360. NITRO-DUR [Suspect]
     Active Substance: NITROGLYCERIN
     Dosage: 1 DOSAGE FORM, QD
     Route: 065
  361. NITRO-DUR [Suspect]
     Active Substance: NITROGLYCERIN
     Dosage: 1 DOSAGE FORM, QD
     Route: 065
  362. NITRO-DUR [Suspect]
     Active Substance: NITROGLYCERIN
     Dosage: 1 DOSAGE FORM, QD
     Route: 065
  363. NITRO-DUR [Suspect]
     Active Substance: NITROGLYCERIN
     Indication: Prinzmetal angina
     Dosage: 1 DOSAGE FORM, QD (EXTENDED RELEASE)
     Route: 065
  364. NITRO-DUR [Suspect]
     Active Substance: NITROGLYCERIN
     Dosage: 1 DF, Q6H
     Route: 048
  365. NITRO-DUR [Suspect]
     Active Substance: NITROGLYCERIN
     Dosage: 1 DF, Q8H
     Route: 065
  366. NITRO-DUR [Suspect]
     Active Substance: NITROGLYCERIN
     Dosage: 1 DF, Q8H
     Route: 065
  367. NITRO-DUR [Suspect]
     Active Substance: NITROGLYCERIN
     Dosage: 1 DF (1 EVERY 4 DAYS)
     Route: 065
  368. NITRO-DUR [Suspect]
     Active Substance: NITROGLYCERIN
     Indication: Migraine
     Dosage: UNK, QD
     Route: 048
  369. NITRO-DUR [Suspect]
     Active Substance: NITROGLYCERIN
     Dosage: UNK
     Route: 048
  370. NITRO-DUR [Suspect]
     Active Substance: NITROGLYCERIN
     Dosage: UNK
     Route: 048
  371. NITRO-DUR [Suspect]
     Active Substance: NITROGLYCERIN
     Dosage: UNK
     Route: 065
  372. NITROGLYCERIN [Suspect]
     Active Substance: NITROGLYCERIN
     Dosage: 0.5 ML, QW
     Route: 065
  373. NITROGLYCERIN [Suspect]
     Active Substance: NITROGLYCERIN
     Dosage: 0.5 ML, QD
     Route: 065
  374. NITROGLYCERIN [Suspect]
     Active Substance: NITROGLYCERIN
     Dosage: 0.5 ML
     Route: 065
  375. NITROGLYCERIN [Suspect]
     Active Substance: NITROGLYCERIN
     Dosage: 0.5 ML
     Route: 065
  376. NITROGLYCERIN [Suspect]
     Active Substance: NITROGLYCERIN
     Dosage: 0.5 ML
     Route: 065
  377. NITROGLYCERIN [Suspect]
     Active Substance: NITROGLYCERIN
     Dosage: 0.5 ML
     Route: 065
  378. NITROGLYCERIN [Suspect]
     Active Substance: NITROGLYCERIN
     Dosage: 1 DF, QD
     Route: 048
  379. NITROGLYCERIN [Suspect]
     Active Substance: NITROGLYCERIN
     Dosage: 1 DF, QD
     Route: 065
  380. NITROGLYCERIN [Suspect]
     Active Substance: NITROGLYCERIN
     Dosage: 1 DF, QD (OROMUCOSAL SPRAY)
     Route: 065
  381. NITROGLYCERIN [Suspect]
     Active Substance: NITROGLYCERIN
     Dosage: 1 DF, QD (SUBLINGUAL SPRAY)
     Route: 048
  382. NITROGLYCERIN [Suspect]
     Active Substance: NITROGLYCERIN
     Dosage: 1 DF, BID
     Route: 030
  383. NITROGLYCERIN [Suspect]
     Active Substance: NITROGLYCERIN
     Dosage: 1 DF
     Route: 065
  384. NITROGLYCERIN [Suspect]
     Active Substance: NITROGLYCERIN
     Dosage: 1 DF (OROMUCOSAL SPRAY)
     Route: 048
  385. NITROGLYCERIN [Suspect]
     Active Substance: NITROGLYCERIN
     Dosage: 1 DF, ROA - OROPHARINGEAL (OROMUCOSAL SPRAY)
     Route: 065
  386. NITROGLYCERIN [Suspect]
     Active Substance: NITROGLYCERIN
     Dosage: 1.5 DF, QD
     Route: 065
  387. NITROGLYCERIN [Suspect]
     Active Substance: NITROGLYCERIN
     Dosage: 160 MG
     Route: 065
  388. NITROGLYCERIN [Suspect]
     Active Substance: NITROGLYCERIN
     Dosage: 2 DF, QD
     Route: 065
  389. NITROGLYCERIN [Suspect]
     Active Substance: NITROGLYCERIN
     Dosage: 2 DF
     Route: 048
  390. NITROGLYCERIN [Suspect]
     Active Substance: NITROGLYCERIN
     Dosage: 2 DF
     Route: 065
  391. NITROGLYCERIN [Suspect]
     Active Substance: NITROGLYCERIN
     Dosage: 3 DF, QD
     Route: 065
  392. NITROGLYCERIN [Suspect]
     Active Substance: NITROGLYCERIN
     Dosage: 4 DF, QD
     Route: 048
  393. NITROGLYCERIN [Suspect]
     Active Substance: NITROGLYCERIN
     Dosage: 81 MG, QD
     Route: 065
  394. NITROGLYCERIN [Suspect]
     Active Substance: NITROGLYCERIN
     Dosage: 81 MG
     Route: 065
  395. NITROGLYCERIN [Suspect]
     Active Substance: NITROGLYCERIN
     Indication: Prinzmetal angina
     Dosage: UNK, Q6H
     Route: 048
  396. NITROGLYCERIN [Suspect]
     Active Substance: NITROGLYCERIN
     Dosage: UNK, Q8H
     Route: 048
  397. NITROGLYCERIN [Suspect]
     Active Substance: NITROGLYCERIN
     Dosage: UNK, Q8H
     Route: 048
  398. NITROGLYCERIN [Suspect]
     Active Substance: NITROGLYCERIN
     Dosage: UNK
     Route: 030
  399. NITROGLYCERIN [Suspect]
     Active Substance: NITROGLYCERIN
     Dosage: UNK
     Route: 061
  400. NITROGLYCERIN [Suspect]
     Active Substance: NITROGLYCERIN
     Dosage: UNK
     Route: 065
  401. NITROGLYCERIN [Suspect]
     Active Substance: NITROGLYCERIN
     Indication: Migraine
     Dosage: UNK (1 EVERY 4 DAYS)
     Route: 048
  402. NITROGLYCERIN [Suspect]
     Active Substance: NITROGLYCERIN
     Dosage: UNK (INHALATION GAS)
     Route: 048
  403. NITROGLYCERIN [Suspect]
     Active Substance: NITROGLYCERIN
     Dosage: UNK (OROMUCOSAL SPRAY)
     Route: 048
  404. NITROGLYCERIN [Suspect]
     Active Substance: NITROGLYCERIN
     Dosage: UNK (SUBLINGUAL SPRAY)
     Route: 048
  405. NITROGLYCERIN [Suspect]
     Active Substance: NITROGLYCERIN
     Dosage: UNK(INHALATION GAS)
     Route: 048
  406. ACETAMINOPHEN\CODEINE PHOSPHATE [Suspect]
     Active Substance: ACETAMINOPHEN\CODEINE PHOSPHATE
     Indication: Product used for unknown indication
     Dosage: UNK (ELIXIR)
     Route: 065
  407. RAMIPRIL [Suspect]
     Active Substance: RAMIPRIL
     Dosage: 0.25 DF
     Route: 065
  408. RAMIPRIL [Suspect]
     Active Substance: RAMIPRIL
     Dosage: 1 DF, QD
     Route: 048
  409. RAMIPRIL [Suspect]
     Active Substance: RAMIPRIL
     Dosage: 1 DF, Q4H
     Route: 065
  410. RAMIPRIL [Suspect]
     Active Substance: RAMIPRIL
     Dosage: 1 DF, Q6H
     Route: 048
  411. RAMIPRIL [Suspect]
     Active Substance: RAMIPRIL
     Dosage: 1 DF, Q6H
     Route: 065
  412. RAMIPRIL [Suspect]
     Active Substance: RAMIPRIL
     Dosage: 1 DF, Q6H
     Route: 065
  413. RAMIPRIL [Suspect]
     Active Substance: RAMIPRIL
     Dosage: 1 DF, Q6H
     Route: 065
  414. RAMIPRIL [Suspect]
     Active Substance: RAMIPRIL
     Dosage: UNK, Q6H
     Route: 065
  415. RAMIPRIL [Suspect]
     Active Substance: RAMIPRIL
     Indication: Migraine
     Dosage: 1 DOSAGE FORM, QID
     Route: 065
  416. RAMIPRIL [Suspect]
     Active Substance: RAMIPRIL
     Dosage: 1 DOSAGE FORM, QID
     Route: 065
  417. RAMIPRIL [Suspect]
     Active Substance: RAMIPRIL
     Dosage: 1 DOSAGE FORM, QID
     Route: 065
  418. RAMIPRIL [Suspect]
     Active Substance: RAMIPRIL
     Dosage: 1 DF (1 EVERY 4 DAYS)
     Route: 065
  419. RAMIPRIL [Suspect]
     Active Substance: RAMIPRIL
     Dosage: 4 DF, QD
     Route: 048
  420. RAMIPRIL [Suspect]
     Active Substance: RAMIPRIL
     Dosage: 4 DF, QD
     Route: 048
  421. RAMIPRIL [Suspect]
     Active Substance: RAMIPRIL
     Dosage: 4 DF, QD
     Route: 048
  422. RAMIPRIL [Suspect]
     Active Substance: RAMIPRIL
     Indication: Prinzmetal angina
     Dosage: 4 DOSAGE FORM, QD
     Route: 048
  423. RAMIPRIL [Suspect]
     Active Substance: RAMIPRIL
     Dosage: 4 DOSAGE FORM, QD
     Route: 048
  424. RAMIPRIL [Suspect]
     Active Substance: RAMIPRIL
     Dosage: 4 DOSAGE FORM, QD
     Route: 065
  425. RAMIPRIL [Suspect]
     Active Substance: RAMIPRIL
     Dosage: 4 DOSAGE FORM, QID
     Route: 065
  426. RAMIPRIL [Suspect]
     Active Substance: RAMIPRIL
     Dosage: UNK, QD
     Route: 065
  427. RAMIPRIL [Suspect]
     Active Substance: RAMIPRIL
     Dosage: UNK, QD
     Route: 065
  428. RAMIPRIL [Suspect]
     Active Substance: RAMIPRIL
     Dosage: UNK, QD
     Route: 065
  429. RAMIPRIL [Suspect]
     Active Substance: RAMIPRIL
     Dosage: UNK, Q6H
     Route: 048
  430. RAMIPRIL [Suspect]
     Active Substance: RAMIPRIL
     Dosage: UNK, Q6H
     Route: 065
  431. RAMIPRIL [Suspect]
     Active Substance: RAMIPRIL
     Dosage: UNK, Q6H
     Route: 065
  432. RAMIPRIL [Suspect]
     Active Substance: RAMIPRIL
     Dosage: UNK
     Route: 048
  433. RAMIPRIL [Suspect]
     Active Substance: RAMIPRIL
     Dosage: UNK (1 EVERY 4 DAYS)
     Route: 065
  434. RAMIPRIL [Suspect]
     Active Substance: RAMIPRIL
     Dosage: UNK, 1 EVERY 4 DAYS
     Route: 048
  435. ROSUVASTATIN [Suspect]
     Active Substance: ROSUVASTATIN
     Dosage: 0.5 ML, QD
     Route: 065
  436. ROSUVASTATIN [Suspect]
     Active Substance: ROSUVASTATIN
     Dosage: 0.5 ML, QD
     Route: 065
  437. ROSUVASTATIN [Suspect]
     Active Substance: ROSUVASTATIN
     Dosage: 0.5 ML
     Route: 065
  438. ROSUVASTATIN [Suspect]
     Active Substance: ROSUVASTATIN
     Dosage: 1 DOSAGE FORM, QD
     Route: 065
  439. ROSUVASTATIN [Suspect]
     Active Substance: ROSUVASTATIN
     Dosage: 1 DOSAGE FORM, QD
     Route: 065
  440. ROSUVASTATIN [Suspect]
     Active Substance: ROSUVASTATIN
     Dosage: 1 DF, Q6H
     Route: 065
  441. ROSUVASTATIN [Suspect]
     Active Substance: ROSUVASTATIN
     Dosage: 1 DF, Q8H
     Route: 065
  442. ROSUVASTATIN [Suspect]
     Active Substance: ROSUVASTATIN
     Dosage: 1 DOSAGE FORM, BID
     Route: 065
  443. ROSUVASTATIN [Suspect]
     Active Substance: ROSUVASTATIN
     Dosage: 1 DOSAGE FORM, TID
     Route: 065
  444. ROSUVASTATIN [Suspect]
     Active Substance: ROSUVASTATIN
     Dosage: 1 DOSAGE FORM, TID
     Route: 065
  445. ROSUVASTATIN [Suspect]
     Active Substance: ROSUVASTATIN
     Dosage: 1 DOSAGE FORM, TID
     Route: 065
  446. ROSUVASTATIN [Suspect]
     Active Substance: ROSUVASTATIN
     Dosage: 1 DOSAGE FORM, QID
     Route: 065
  447. ROSUVASTATIN [Suspect]
     Active Substance: ROSUVASTATIN
     Dosage: 1 DOSAGE FORM, QID
     Route: 065
  448. ROSUVASTATIN [Suspect]
     Active Substance: ROSUVASTATIN
     Dosage: 1 DOSAGE FORM
     Route: 065
  449. ROSUVASTATIN [Suspect]
     Active Substance: ROSUVASTATIN
     Dosage: 1 DOSAGE FORM
     Route: 065
  450. ROSUVASTATIN [Suspect]
     Active Substance: ROSUVASTATIN
     Dosage: 1.5 MG, QD
     Route: 065
  451. ROSUVASTATIN [Suspect]
     Active Substance: ROSUVASTATIN
     Dosage: 1.5 DOSAGE FORM, QD
     Route: 065
  452. ROSUVASTATIN [Suspect]
     Active Substance: ROSUVASTATIN
     Dosage: 2 DOSAGE FORM, QD
     Route: 065
  453. ROSUVASTATIN [Suspect]
     Active Substance: ROSUVASTATIN
     Dosage: 2 DOSAGE FORM, QD
     Route: 065
  454. ROSUVASTATIN [Suspect]
     Active Substance: ROSUVASTATIN
     Dosage: 2 DF, Q12H
     Route: 065
  455. ROSUVASTATIN [Suspect]
     Active Substance: ROSUVASTATIN
     Dosage: 3 DOSAGE FORM, QD
     Route: 065
  456. ROSUVASTATIN [Suspect]
     Active Substance: ROSUVASTATIN
     Dosage: 3 DOSAGE FORM, QD
     Route: 065
  457. ROSUVASTATIN [Suspect]
     Active Substance: ROSUVASTATIN
     Indication: Prinzmetal angina
     Dosage: UNK, QD
     Route: 048
  458. ROSUVASTATIN [Suspect]
     Active Substance: ROSUVASTATIN
     Dosage: UNK, QD
     Route: 048
  459. ROSUVASTATIN [Suspect]
     Active Substance: ROSUVASTATIN
     Indication: Migraine
     Dosage: UNK, QD
     Route: 065
  460. ROSUVASTATIN [Suspect]
     Active Substance: ROSUVASTATIN
     Dosage: UNK, QD
     Route: 065
  461. ROSUVASTATIN [Suspect]
     Active Substance: ROSUVASTATIN
     Dosage: UNK
     Route: 048
  462. ROSUVASTATIN [Suspect]
     Active Substance: ROSUVASTATIN
     Dosage: UNK
     Route: 048
  463. ROSUVASTATIN [Suspect]
     Active Substance: ROSUVASTATIN
     Dosage: UNK
     Route: 048
  464. ROSUVASTATIN [Suspect]
     Active Substance: ROSUVASTATIN
     Dosage: UNK
     Route: 061
  465. ROSUVASTATIN [Suspect]
     Active Substance: ROSUVASTATIN
     Dosage: UNK
     Route: 065
  466. ROSUVASTATIN [Suspect]
     Active Substance: ROSUVASTATIN
     Dosage: UNK
     Route: 065
  467. ROSUVASTATIN [Suspect]
     Active Substance: ROSUVASTATIN
     Dosage: UNK
     Route: 065
  468. ROSUVASTATIN [Suspect]
     Active Substance: ROSUVASTATIN
     Dosage: UNK
     Route: 065
  469. ROSUVASTATIN [Suspect]
     Active Substance: ROSUVASTATIN
     Dosage: UNK
     Route: 065
  470. ROSUVASTATIN CALCIUM [Suspect]
     Active Substance: ROSUVASTATIN CALCIUM
     Dosage: 0.5 ML, QD
     Route: 065
  471. ROSUVASTATIN CALCIUM [Suspect]
     Active Substance: ROSUVASTATIN CALCIUM
     Dosage: 0.5 ML
     Route: 065
  472. ROSUVASTATIN CALCIUM [Suspect]
     Active Substance: ROSUVASTATIN CALCIUM
     Dosage: 1 DF, QD
     Route: 065
  473. ROSUVASTATIN CALCIUM [Suspect]
     Active Substance: ROSUVASTATIN CALCIUM
     Dosage: 1 DF, QD (TABLET)
     Route: 048
  474. ROSUVASTATIN CALCIUM [Suspect]
     Active Substance: ROSUVASTATIN CALCIUM
     Dosage: 1 DF, QD (TABLET)
     Route: 065
  475. ROSUVASTATIN CALCIUM [Suspect]
     Active Substance: ROSUVASTATIN CALCIUM
     Dosage: 1 DF, QD (FILM-COATED TABLET)
     Route: 048
  476. ROSUVASTATIN CALCIUM [Suspect]
     Active Substance: ROSUVASTATIN CALCIUM
     Dosage: 1 DF, QD(FILM-COATED TABLET)
     Route: 065
  477. ROSUVASTATIN CALCIUM [Suspect]
     Active Substance: ROSUVASTATIN CALCIUM
     Indication: Prinzmetal angina
     Dosage: 1 DOSAGE FORM, QD
     Route: 048
  478. ROSUVASTATIN CALCIUM [Suspect]
     Active Substance: ROSUVASTATIN CALCIUM
     Dosage: 1 DF, BID
     Route: 065
  479. ROSUVASTATIN CALCIUM [Suspect]
     Active Substance: ROSUVASTATIN CALCIUM
     Dosage: 1.5 DF, QD
     Route: 065
  480. ROSUVASTATIN CALCIUM [Suspect]
     Active Substance: ROSUVASTATIN CALCIUM
     Dosage: 3 DF, QD
     Route: 065
  481. ROSUVASTATIN CALCIUM [Suspect]
     Active Substance: ROSUVASTATIN CALCIUM
     Dosage: UNK, QD
     Route: 065
  482. ROSUVASTATIN CALCIUM [Suspect]
     Active Substance: ROSUVASTATIN CALCIUM
     Dosage: UNK, QD
     Route: 065
  483. ROSUVASTATIN CALCIUM [Suspect]
     Active Substance: ROSUVASTATIN CALCIUM
     Indication: Migraine
     Dosage: UNK
     Route: 048
  484. ROSUVASTATIN CALCIUM [Suspect]
     Active Substance: ROSUVASTATIN CALCIUM
     Dosage: UNK
     Route: 061
  485. ZOPICLONE [Suspect]
     Active Substance: ZOPICLONE
     Dosage: 1 DF, QD
     Route: 048
  486. ZOPICLONE [Suspect]
     Active Substance: ZOPICLONE
     Dosage: 1 DF, QD
     Route: 048
  487. ZOPICLONE [Suspect]
     Active Substance: ZOPICLONE
     Indication: Prinzmetal angina
     Dosage: 1 DOSAGE FORM, QD
     Route: 048
  488. ZOPICLONE [Suspect]
     Active Substance: ZOPICLONE
     Indication: Migraine
     Dosage: UNK, QD
     Route: 048
  489. ZOPICLONE [Suspect]
     Active Substance: ZOPICLONE
     Dosage: UNK, QD
     Route: 065
  490. RIVOTRIL [Suspect]
     Active Substance: CLONAZEPAM
     Dosage: 0.5 MG, QD
     Route: 048
  491. RIVOTRIL [Suspect]
     Active Substance: CLONAZEPAM
     Dosage: 0.5 MG
     Route: 065
  492. RIVOTRIL [Suspect]
     Active Substance: CLONAZEPAM
     Dosage: 0.5 MG
     Route: 065
  493. RIVOTRIL [Suspect]
     Active Substance: CLONAZEPAM
     Dosage: 1 MG
     Route: 065
  494. RIVOTRIL [Suspect]
     Active Substance: CLONAZEPAM
     Dosage: 1 DF, QD
     Route: 048
  495. RIVOTRIL [Suspect]
     Active Substance: CLONAZEPAM
     Dosage: 1 DF, Q8H
     Route: 048
  496. RIVOTRIL [Suspect]
     Active Substance: CLONAZEPAM
     Dosage: 1 DF, Q8H
     Route: 048
  497. RIVOTRIL [Suspect]
     Active Substance: CLONAZEPAM
     Dosage: 1 DF, Q8H
     Route: 065
  498. RIVOTRIL [Suspect]
     Active Substance: CLONAZEPAM
     Dosage: 1 DOSAGE FORM, TID
     Route: 048
  499. RIVOTRIL [Suspect]
     Active Substance: CLONAZEPAM
     Dosage: 3 DOSAGE FORM, QD
     Route: 048
  500. RIVOTRIL [Suspect]
     Active Substance: CLONAZEPAM
     Dosage: 3 DOSAGE FORM, QD
     Route: 065
  501. RIVOTRIL [Suspect]
     Active Substance: CLONAZEPAM
     Dosage: 3 DF, Q8H
     Route: 048
  502. RIVOTRIL [Suspect]
     Active Substance: CLONAZEPAM
     Dosage: 3 DF, Q8H
     Route: 065
  503. RIVOTRIL [Suspect]
     Active Substance: CLONAZEPAM
     Indication: Prinzmetal angina
     Dosage: UNK, QD
     Route: 048
  504. RIVOTRIL [Suspect]
     Active Substance: CLONAZEPAM
     Dosage: UNK, QD
     Route: 048
  505. RIVOTRIL [Suspect]
     Active Substance: CLONAZEPAM
     Dosage: UNK, QD
     Route: 048
  506. RIVOTRIL [Suspect]
     Active Substance: CLONAZEPAM
     Dosage: UNK, QD
     Route: 048
  507. RIVOTRIL [Suspect]
     Active Substance: CLONAZEPAM
     Dosage: UNK, Q8H
     Route: 048
  508. RIVOTRIL [Suspect]
     Active Substance: CLONAZEPAM
     Dosage: UNK, Q8H
     Route: 065
  509. RIVOTRIL [Suspect]
     Active Substance: CLONAZEPAM
     Dosage: UNK, Q8H
     Route: 065
  510. RIVOTRIL [Suspect]
     Active Substance: CLONAZEPAM
     Dosage: UNK UNK, TID
     Route: 048
  511. RIVOTRIL [Suspect]
     Active Substance: CLONAZEPAM
     Indication: Migraine
     Dosage: UNK, TID
     Route: 048
  512. RIVOTRIL [Suspect]
     Active Substance: CLONAZEPAM
     Dosage: UNK
     Route: 065
  513. RIVOTRIL [Suspect]
     Active Substance: CLONAZEPAM
     Dosage: UNK
     Route: 065
  514. RIVOTRIL [Suspect]
     Active Substance: CLONAZEPAM
     Dosage: UNK
     Route: 065
  515. SYNTHROID [Suspect]
     Active Substance: LEVOTHYROXINE SODIUM
     Dosage: 1 DF, QD
     Route: 065
  516. SYNTHROID [Suspect]
     Active Substance: LEVOTHYROXINE SODIUM
     Indication: Prinzmetal angina
     Dosage: 1 DOSAGE FORM, QD
     Route: 065
  517. SYNTHROID [Suspect]
     Active Substance: LEVOTHYROXINE SODIUM
     Dosage: 1 DF
     Route: 065
  518. SYNTHROID [Suspect]
     Active Substance: LEVOTHYROXINE SODIUM
     Indication: Migraine
     Dosage: UNK, QD
     Route: 065
  519. SYNTHROID [Suspect]
     Active Substance: LEVOTHYROXINE SODIUM
     Dosage: UNK, QD
     Route: 065
  520. TAMSULOSIN [Suspect]
     Active Substance: TAMSULOSIN
     Dosage: 1 DF, QD
     Route: 048
  521. TAMSULOSIN [Suspect]
     Active Substance: TAMSULOSIN
     Dosage: 1 DOSAGE FORM, QD
     Route: 065
  522. TAMSULOSIN [Suspect]
     Active Substance: TAMSULOSIN
     Dosage: 1 DOSAGE FORM, QD
     Route: 065
  523. TAMSULOSIN [Suspect]
     Active Substance: TAMSULOSIN
     Dosage: 1 DOSAGE FORM, QD
     Route: 065
  524. TAMSULOSIN [Suspect]
     Active Substance: TAMSULOSIN
     Dosage: 1 DOSAGE FORM, QID
     Route: 065
  525. TAMSULOSIN [Suspect]
     Active Substance: TAMSULOSIN
     Indication: Product used for unknown indication
     Dosage: UNK
     Route: 048
  526. TAMSULOSIN [Suspect]
     Active Substance: TAMSULOSIN
     Dosage: UNK
     Route: 048
  527. TAMSULOSIN HYDROCHLORIDE [Suspect]
     Active Substance: TAMSULOSIN HYDROCHLORIDE
     Dosage: 1 DF, QD
     Route: 048
  528. TAMSULOSIN HYDROCHLORIDE [Suspect]
     Active Substance: TAMSULOSIN HYDROCHLORIDE
     Dosage: 1 DF, QD
     Route: 048
  529. TAMSULOSIN HYDROCHLORIDE [Suspect]
     Active Substance: TAMSULOSIN HYDROCHLORIDE
     Indication: Migraine
     Dosage: 1 DOSAGE FORM, QD
     Route: 065
  530. TAMSULOSIN HYDROCHLORIDE [Suspect]
     Active Substance: TAMSULOSIN HYDROCHLORIDE
     Dosage: 1 DOSAGE FORM, QD
     Route: 065
  531. TAMSULOSIN HYDROCHLORIDE [Suspect]
     Active Substance: TAMSULOSIN HYDROCHLORIDE
     Dosage: 1 DF
     Route: 048
  532. TAMSULOSIN HYDROCHLORIDE [Suspect]
     Active Substance: TAMSULOSIN HYDROCHLORIDE
     Dosage: UNK
     Route: 048
  533. TAMSULOSIN HYDROCHLORIDE [Suspect]
     Active Substance: TAMSULOSIN HYDROCHLORIDE
     Indication: Prinzmetal angina
     Dosage: UNK
     Route: 065
  534. TICAGRELOR [Suspect]
     Active Substance: TICAGRELOR
     Dosage: 1 DF, Q12H
     Route: 065
  535. TICAGRELOR [Suspect]
     Active Substance: TICAGRELOR
     Dosage: 1 DOSAGE FORM, Q12H
     Route: 048
  536. TICAGRELOR [Suspect]
     Active Substance: TICAGRELOR
     Dosage: 1 DF
     Route: 048
  537. TICAGRELOR [Suspect]
     Active Substance: TICAGRELOR
     Indication: Product used for unknown indication
     Dosage: 1 DOSAGE FORM (1 EVERY 5 DAYS)
     Route: 048
  538. TICAGRELOR [Suspect]
     Active Substance: TICAGRELOR
     Dosage: UNK
     Route: 065
  539. TESTOSTERONE [Suspect]
     Active Substance: TESTOSTERONE
     Indication: Prinzmetal angina
     Dosage: 0.5 ML, QD
     Route: 065
  540. TESTOSTERONE [Suspect]
     Active Substance: TESTOSTERONE
     Dosage: 0.5 ML, QD
     Route: 065
  541. TESTOSTERONE [Suspect]
     Active Substance: TESTOSTERONE
     Indication: Migraine
     Dosage: UNK
     Route: 065
  542. TESTOSTERONE [Suspect]
     Active Substance: TESTOSTERONE
     Dosage: UNK
     Route: 065
  543. TESTOSTERONE ENANTHATE [Suspect]
     Active Substance: TESTOSTERONE ENANTHATE
     Dosage: 0.5 ML, QD
     Route: 065
  544. TESTOSTERONE ENANTHATE [Suspect]
     Active Substance: TESTOSTERONE ENANTHATE
     Dosage: 0.5 ML, QD (SOLUTION FOR INJECTION)
     Route: 065
  545. TESTOSTERONE ENANTHATE [Suspect]
     Active Substance: TESTOSTERONE ENANTHATE
     Dosage: 0.5 ML
     Route: 065
  546. TESTOSTERONE ENANTHATE [Suspect]
     Active Substance: TESTOSTERONE ENANTHATE
     Dosage: 0.5 ML (SOLUTION FOR INJECTION)
     Route: 030
  547. TESTOSTERONE ENANTHATE [Suspect]
     Active Substance: TESTOSTERONE ENANTHATE
     Dosage: 5 ML (SOLUTION FOR INJECTION)
     Route: 065
  548. TESTOSTERONE ENANTHATE [Suspect]
     Active Substance: TESTOSTERONE ENANTHATE
     Dosage: UNK
     Route: 065
  549. TESTOSTERONE ENANTHATE [Suspect]
     Active Substance: TESTOSTERONE ENANTHATE
     Indication: Product used for unknown indication
     Dosage: UNK (LIQUID)
     Route: 030
  550. TRAZODONE [Suspect]
     Active Substance: TRAZODONE HYDROCHLORIDE
     Dosage: 1 DF, QD
     Route: 048
  551. TRAZODONE [Suspect]
     Active Substance: TRAZODONE HYDROCHLORIDE
     Indication: Prinzmetal angina
     Dosage: 1 DOSAGE FORM, QD
     Route: 065
  552. TRAZODONE [Suspect]
     Active Substance: TRAZODONE HYDROCHLORIDE
     Dosage: 1 DOSAGE FORM, QD
     Route: 065
  553. TRAZODONE [Suspect]
     Active Substance: TRAZODONE HYDROCHLORIDE
     Indication: Migraine
     Dosage: UNK, QD
     Route: 048
  554. TRAZODONE [Suspect]
     Active Substance: TRAZODONE HYDROCHLORIDE
     Dosage: UNK, QD
     Route: 048
  555. TRAZODONE [Suspect]
     Active Substance: TRAZODONE HYDROCHLORIDE
     Dosage: UNK
     Route: 048
  556. TRAZODONE [Suspect]
     Active Substance: TRAZODONE HYDROCHLORIDE
     Dosage: UNK
     Route: 065
  557. TRAZODONE [Suspect]
     Active Substance: TRAZODONE HYDROCHLORIDE
     Dosage: UNK
     Route: 065
  558. TRAZODONE [Suspect]
     Active Substance: TRAZODONE HYDROCHLORIDE
     Dosage: UNK, QD
     Route: 065
  559. TRAZODONE HYDROCHLORIDE [Suspect]
     Active Substance: TRAZODONE HYDROCHLORIDE
     Indication: Migraine
     Dosage: 1 DOSAGE FORM, QD
     Route: 048
  560. TRAZODONE HYDROCHLORIDE [Suspect]
     Active Substance: TRAZODONE HYDROCHLORIDE
     Dosage: 1 DOSAGE FORM, QD
     Route: 048
  561. TRAZODONE HYDROCHLORIDE [Suspect]
     Active Substance: TRAZODONE HYDROCHLORIDE
     Indication: Prinzmetal angina
     Dosage: 1 DOSAGE FORM, QD
     Route: 065
  562. TRAZODONE HYDROCHLORIDE [Suspect]
     Active Substance: TRAZODONE HYDROCHLORIDE
     Dosage: 1 DOSAGE FORM, QD
     Route: 065
  563. TRAZODONE HYDROCHLORIDE [Suspect]
     Active Substance: TRAZODONE HYDROCHLORIDE
     Dosage: 1 DF
     Route: 065
  564. TRAZODONE HYDROCHLORIDE [Suspect]
     Active Substance: TRAZODONE HYDROCHLORIDE
     Dosage: UNK, QD
     Route: 065
  565. TRAZODONE HYDROCHLORIDE [Suspect]
     Active Substance: TRAZODONE HYDROCHLORIDE
     Dosage: UNK
     Route: 065
  566. TRAZODONE HYDROCHLORIDE [Suspect]
     Active Substance: TRAZODONE HYDROCHLORIDE
     Dosage: UNK
     Route: 065
  567. ZOPICLONE [Suspect]
     Active Substance: ZOPICLONE
     Dosage: 1 DF, QD
     Route: 048
  568. ZOPICLONE [Suspect]
     Active Substance: ZOPICLONE
     Indication: Migraine
     Dosage: 1 DOSAGE FORM, QD
     Route: 065
  569. ZOPICLONE [Suspect]
     Active Substance: ZOPICLONE
     Dosage: 1 DOSAGE FORM, QD
     Route: 065
  570. ZOPICLONE [Suspect]
     Active Substance: ZOPICLONE
     Indication: Prinzmetal angina
     Dosage: 1 DOSAGE FORM
     Route: 065
  571. ZOPICLONE [Suspect]
     Active Substance: ZOPICLONE
     Dosage: 1 DOSAGE FORM
     Route: 065
  572. ZOPICLONE [Suspect]
     Active Substance: ZOPICLONE
     Dosage: UNK, QD
     Route: 065
  573. ZOPICLONE [Suspect]
     Active Substance: ZOPICLONE
     Dosage: UNK
     Route: 065
  574. ZOPICLONE [Suspect]
     Active Substance: ZOPICLONE
     Dosage: UNK
     Route: 065
  575. AMLODIPINE BESYLATE [Concomitant]
     Active Substance: AMLODIPINE BESYLATE
     Indication: Product used for unknown indication
     Dosage: UNK, QD
     Route: 065
  576. AMLODIPINE BESYLATE [Concomitant]
     Active Substance: AMLODIPINE BESYLATE
     Dosage: UNK, QD
     Route: 065
  577. BENZOYL PEROXIDE [Concomitant]
     Active Substance: BENZOYL PEROXIDE
     Indication: Product used for unknown indication
     Dosage: 1 DF, QD
     Route: 061
  578. BENZOYL PEROXIDE [Concomitant]
     Active Substance: BENZOYL PEROXIDE
     Dosage: 1 DF, QD
     Route: 061
  579. BENZOYL PEROXIDE [Concomitant]
     Active Substance: BENZOYL PEROXIDE
     Dosage: UNK
     Route: 061
  580. BENZOYL PEROXIDE [Concomitant]
     Active Substance: BENZOYL PEROXIDE
     Dosage: UNK
     Route: 061
  581. BENZOYL PEROXIDE [Concomitant]
     Active Substance: BENZOYL PEROXIDE
     Dosage: UNK
     Route: 061
  582. BENZOYL PEROXIDE [Concomitant]
     Active Substance: BENZOYL PEROXIDE
     Dosage: UNK
     Route: 065
  583. BENZOYL PEROXIDE [Concomitant]
     Active Substance: BENZOYL PEROXIDE
     Dosage: UNK
     Route: 065
  584. BISOPROLOL FUMARATE [Concomitant]
     Active Substance: BISOPROLOL FUMARATE
     Indication: Product used for unknown indication
     Dosage: UNK, QD
     Route: 065
  585. ACETAMINOPHEN\CODEINE PHOSPHATE [Concomitant]
     Active Substance: ACETAMINOPHEN\CODEINE PHOSPHATE
     Dosage: UNK
     Route: 048
  586. ACETAMINOPHEN\CODEINE PHOSPHATE [Concomitant]
     Active Substance: ACETAMINOPHEN\CODEINE PHOSPHATE
     Dosage: UNK
     Route: 048
  587. ACETAMINOPHEN\CODEINE PHOSPHATE [Concomitant]
     Active Substance: ACETAMINOPHEN\CODEINE PHOSPHATE
     Indication: Product used for unknown indication
     Dosage: UNK (TABLET)
     Route: 065
  588. ESCITALOPRAM OXALATE [Concomitant]
     Active Substance: ESCITALOPRAM OXALATE
     Indication: Product used for unknown indication
     Dosage: UNK, QD
     Route: 065
  589. HYDROMORPHONE [Concomitant]
     Active Substance: HYDROMORPHONE
     Indication: Prinzmetal angina
     Dosage: UNK
     Route: 065
  590. HYDROMORPHONE [Concomitant]
     Active Substance: HYDROMORPHONE
     Indication: Migraine
  591. PREDNISONE [Concomitant]
     Active Substance: PREDNISONE
     Indication: Prinzmetal angina
     Dosage: UNK
     Route: 065
  592. PREDNISONE [Concomitant]
     Active Substance: PREDNISONE
     Indication: Migraine
  593. RAMIPRIL [Concomitant]
     Active Substance: RAMIPRIL
     Indication: Product used for unknown indication
     Dosage: UNK (ONE EVERY 4 DAYS)
     Route: 048

REACTIONS (4)
  - Device dislocation [Recovered/Resolved]
  - Device malfunction [Recovered/Resolved]
  - Drug ineffective [Recovered/Resolved]
  - Product use in unapproved indication [Unknown]
